FAERS Safety Report 25453488 (Version 2)
Quarter: 2025Q3

REPORT INFORMATION
  Report Type: Report from Study
  Country: US (occurrence: US)
  Receive Date: 20250619
  Receipt Date: 20250903
  Transmission Date: 20251021
  Serious: Yes (Other)
  Sender: ABBVIE
  Company Number: US-ABBVIE-6329230

PATIENT
  Age: 59 Year
  Sex: Female

DRUGS (3)
  1. HUMIRA [Suspect]
     Active Substance: ADALIMUMAB
     Indication: Psoriatic arthropathy
     Dosage: FORM STRENGTH: 40 MG
     Route: 058
     Dates: start: 20211117, end: 2023
  2. HUMIRA [Suspect]
     Active Substance: ADALIMUMAB
     Route: 058
  3. CLARITIN [Concomitant]
     Active Substance: LORATADINE
     Indication: Multiple allergies

REACTIONS (12)
  - Nasal septum deviation [Unknown]
  - Sinus congestion [Recovering/Resolving]
  - Incision site impaired healing [Recovered/Resolved]
  - Mammoplasty [Unknown]
  - Pyrexia [Recovering/Resolving]
  - Abdominoplasty [Unknown]
  - Post procedural infection [Unknown]
  - Cough [Recovering/Resolving]
  - Ear infection [Recovering/Resolving]
  - Oropharyngeal pain [Recovering/Resolving]
  - Upper respiratory tract infection [Recovering/Resolving]
  - Drug ineffective [Unknown]

NARRATIVE: CASE EVENT DATE: 20230101
